FAERS Safety Report 14375362 (Version 1)
Quarter: 2018Q1

REPORT INFORMATION
  Report Type: Spontaneous
  Country: US (occurrence: US)
  Receive Date: 20180111
  Receipt Date: 20180111
  Transmission Date: 20180509
  Serious: Yes (Other)
  Sender: FDA-Public Use
  Company Number: US-GLAXOSMITHKLINE-US2018001119

PATIENT
  Sex: Female

DRUGS (2)
  1. BENLYSTA [Suspect]
     Active Substance: BELIMUMAB
     Indication: SYSTEMIC LUPUS ERYTHEMATOSUS
     Dosage: 1022 MG, CYC
     Route: 042
     Dates: start: 201611
  2. BENLYSTA [Concomitant]
     Active Substance: BELIMUMAB
     Dosage: UNK UNK, WE
     Dates: start: 201711

REACTIONS (13)
  - Myocardial infarction [Recovered/Resolved]
  - Systemic lupus erythematosus [Recovered/Resolved]
  - Fatigue [Recovered/Resolved]
  - Urinary tract infection [Recovered/Resolved]
  - Asthenia [Recovered/Resolved]
  - Somnolence [Recovered/Resolved]
  - Pyrexia [Recovered/Resolved]
  - Drug ineffective [Recovered/Resolved]
  - Chills [Unknown]
  - Cold sweat [Unknown]
  - Adverse drug reaction [Unknown]
  - Amnesia [Recovered/Resolved]
  - Nausea [Recovered/Resolved]
